FAERS Safety Report 11365130 (Version 11)
Quarter: 2016Q1

REPORT INFORMATION
  Report Type: Report from Study
  Country: BE (occurrence: BE)
  Receive Date: 20150811
  Receipt Date: 20160212
  Transmission Date: 20160525
  Serious: Yes (Hospitalization)
  Sender: FDA-Public Use
  Company Number: BE-ABBVIE-15P-013-1441364-00

PATIENT
  Sex: Male

DRUGS (6)
  1. DUODOPA [Suspect]
     Active Substance: CARBIDOPA\LEVODOPA
     Dosage: DOSE CONTINUOUSLY MONITORED AND ADAPTED
     Route: 050
     Dates: start: 20110209, end: 20150527
  2. DUODOPA [Suspect]
     Active Substance: CARBIDOPA\LEVODOPA
     Indication: PARKINSON^S DISEASE
     Dosage: AM = 5 ML, CD = 1.9 ML/H DURING 16H, ED = 1 ML
     Route: 050
     Dates: start: 20110131, end: 20110209
  3. DUODOPA [Suspect]
     Active Substance: CARBIDOPA\LEVODOPA
     Dosage: AM = 6 ML; CD = 1.7 ML/HR DURING 16 HRS; ED = 1.3 ML
     Route: 050
     Dates: start: 20150910
  4. DUODOPA [Suspect]
     Active Substance: CARBIDOPA\LEVODOPA
     Dosage: AM=6ML; CD=1.7ML/HR DURING 16HRS; ED=1.3ML
     Route: 050
     Dates: end: 20150906
  5. DUODOPA [Suspect]
     Active Substance: CARBIDOPA\LEVODOPA
     Dosage: AM DOSE=0.7ML, CD=1.5ML/H FOR 16HRS AND ED=0.3ML
     Route: 050
     Dates: start: 20150906, end: 20150910
  6. DUODOPA [Suspect]
     Active Substance: CARBIDOPA\LEVODOPA
     Dosage: AM = 6 ML, CD = 1.9 ML/H DURING 16H, ED = 1.3 ML
     Route: 050
     Dates: start: 20150527

REACTIONS (10)
  - Hip surgery [Unknown]
  - Dyskinesia [Recovering/Resolving]
  - Confusional state [Recovering/Resolving]
  - Enteral nutrition [Not Recovered/Not Resolved]
  - Device dislocation [Recovered/Resolved]
  - Stress [Unknown]
  - Weight increased [Unknown]
  - Incorrect route of drug administration [Unknown]
  - Pallor [Unknown]
  - Staphylococcal infection [Unknown]
